FAERS Safety Report 10158659 (Version 3)
Quarter: 2018Q4

REPORT INFORMATION
  Report Type: Spontaneous
  Country: FR (occurrence: FR)
  Receive Date: 20140508
  Receipt Date: 20181019
  Transmission Date: 20190204
  Serious: Yes (Life-Threatening, Hospitalization)
  Sender: FDA-Public Use
  Company Number: FR-ROCHE-1397311

PATIENT
  Age: 79 Year
  Sex: Female
  Weight: 58 kg

DRUGS (13)
  1. MABTHERA [Suspect]
     Active Substance: RITUXIMAB
     Indication: RHEUMATOID ARTHRITIS
     Dosage: LAST COURSE WAS ON 30/OCT/2013
     Route: 041
     Dates: start: 2006
  2. KARDEGIC [Concomitant]
     Active Substance: ASPIRIN DL-LYSINE
  3. SPIRONOLACTONE. [Concomitant]
     Active Substance: SPIRONOLACTONE
  4. ROACTEMRA [Concomitant]
     Active Substance: TOCILIZUMAB
     Route: 065
     Dates: start: 20140512
  5. SPECIAFOLDINE [Concomitant]
     Active Substance: FOLIC ACID
     Indication: PRODUCT USED FOR UNKNOWN INDICATION
     Route: 065
  6. FORLAX [Concomitant]
     Active Substance: POLYETHYLENE GLYCOL 4000
  7. METOJECT [Suspect]
     Active Substance: METHOTREXATE SODIUM
     Indication: RHEUMATOID ARTHRITIS
     Route: 048
     Dates: end: 20140429
  8. INNOHEP [Suspect]
     Active Substance: TINZAPARIN SODIUM
     Indication: PULMONARY EMBOLISM
     Route: 058
     Dates: start: 201403, end: 20140429
  9. SPECIAFOLDINE [Concomitant]
     Active Substance: FOLIC ACID
  10. RAMIPRIL. [Concomitant]
     Active Substance: RAMIPRIL
  11. CORTANCYL [Concomitant]
     Active Substance: PREDNISONE
  12. DOLIPRANE [Concomitant]
     Active Substance: ACETAMINOPHEN
  13. ACLASTA [Concomitant]
     Active Substance: ZOLEDRONIC ACID
     Dosage: 3 INFUSION RECEIVED
     Route: 065

REACTIONS (2)
  - Aplasia [Recovered/Resolved]
  - Agranulocytosis [Recovered/Resolved]

NARRATIVE: CASE EVENT DATE: 20140425
